FAERS Safety Report 10582939 (Version 1)
Quarter: 2014Q4

REPORT INFORMATION
  Report Type: Spontaneous
  Country: CA (occurrence: CA)
  Receive Date: 20141114
  Receipt Date: 20141114
  Transmission Date: 20150529
  Serious: Yes (Other)
  Sender: FDA-Public Use
  Company Number: CA-ROCHE-1489307

PATIENT
  Age: 58 Year
  Sex: Female

DRUGS (3)
  1. INCIVEK [Suspect]
     Active Substance: TELAPREVIR
     Indication: PRODUCT USED FOR UNKNOWN INDICATION
     Dosage: THERAPY DURATION: 85 DAYS
     Route: 048
  2. RIBAVIRIN. [Suspect]
     Active Substance: RIBAVIRIN
     Indication: PRODUCT USED FOR UNKNOWN INDICATION
     Dosage: THERAPY DURATION: 553 DAYS
     Route: 048
  3. PEGASYS [Suspect]
     Active Substance: PEGINTERFERON ALFA-2A
     Indication: PRODUCT USED FOR UNKNOWN INDICATION
     Dosage: THERAPY DURATION: 857 DAYS
     Route: 058

REACTIONS (7)
  - Drug ineffective [Unknown]
  - Haemoglobin decreased [Unknown]
  - Inappropriate schedule of drug administration [Unknown]
  - Urinary tract infection [Unknown]
  - Asthma [Unknown]
  - Neutropenia [Unknown]
  - White blood cell count decreased [Unknown]
